FAERS Safety Report 6168589-2 (Version None)
Quarter: 2009Q2

REPORT INFORMATION
  Report Type: 
  Country: None (occurrence: None)
  Receive Date: 20090423
  Receipt Date: 20090413
  Transmission Date: 20091009
  Serious: Yes (Hospitalization, Other)
  Sender: FDA-Public Use
  Company Number: 2009SP007932

PATIENT
  Age: 76 Year
  Sex: Male

DRUGS (6)
  1. DIPROGENTA (BETAMETHASONE DIPROPIONATE/GENTAMICIN SULFATE) (BETAMETHAS [Suspect]
     Indication: DERMATITIS
     Dosage: ;TID;TOP
     Route: 061
     Dates: start: 20080211, end: 20080313
  2. MIRTAZAPINE [Concomitant]
  3. MAGNESIUM SULFATE [Concomitant]
  4. ADIRO [Concomitant]
  5. DEPAKENE [Concomitant]
  6. FERROSANOL [Concomitant]

REACTIONS (2)
  - ADRENAL ATROPHY [None]
  - ADRENAL INSUFFICIENCY [None]
